FAERS Safety Report 21962032 (Version 1)
Quarter: 2023Q1

REPORT INFORMATION
  Report Type: Spontaneous
  Country: GB (occurrence: GB)
  Receive Date: 20230207
  Receipt Date: 20230207
  Transmission Date: 20230417
  Serious: Yes (Hospitalization, Other)
  Sender: FDA-Public Use
  Company Number: GB-GLAXOSMITHKLINE-GB2023GSK016285

PATIENT

DRUGS (1)
  1. ACITRETIN [Suspect]
     Active Substance: ACITRETIN
     Indication: Psoriasis
     Dosage: 20 MG, 1D

REACTIONS (13)
  - Cutaneous vasculitis [Recovered/Resolved]
  - Pain in extremity [Recovered/Resolved]
  - Purpura [Recovered/Resolved]
  - Abdominal pain [Recovered/Resolved]
  - Constipation [Recovered/Resolved]
  - Sinus tachycardia [Recovered/Resolved]
  - Palpable purpura [Recovered/Resolved]
  - Skin ulcer [Recovered/Resolved]
  - Abdominal distension [Recovered/Resolved]
  - Tenderness [Recovered/Resolved]
  - Neutrophilia [Recovered/Resolved]
  - Intestinal dilatation [Recovered/Resolved]
  - Gastrointestinal oedema [Recovered/Resolved]
